FAERS Safety Report 6593753-8 (Version None)
Quarter: 2010Q1

REPORT INFORMATION
  Report Type: 
  Country: None (occurrence: None)
  Receive Date: 20100218
  Receipt Date: 20100218
  Transmission Date: 20100710
  Serious: Yes (Other)
  Sender: FDA-Public Use
  Company Number: None

PATIENT
  Sex: Female
  Weight: 64.4108 kg

DRUGS (1)
  1. ZICAM NASAL GEL [Suspect]
     Indication: NASOPHARYNGITIS
     Dosage: ONCE IN EACH NOSTRIL EVERY 4 HOURS

REACTIONS (3)
  - AGEUSIA [None]
  - ANOSMIA [None]
  - THERMAL BURN [None]
